FAERS Safety Report 25433367 (Version 3)
Quarter: 2025Q3

REPORT INFORMATION
  Report Type: Spontaneous
  Country: EU (occurrence: EU)
  Receive Date: 20250613
  Receipt Date: 20250723
  Transmission Date: 20251020
  Serious: Yes (Hospitalization, Other)
  Sender: ELI LILLY AND COMPANY
  Company Number: None

PATIENT
  Age: 68 Year
  Sex: Male
  Weight: 109 kg

DRUGS (1)
  1. MOUNJARO [Suspect]
     Active Substance: TIRZEPATIDE
     Indication: Type 2 diabetes mellitus
     Dosage: DOSE START 2.5MG UNA VOLTA ALLA SETTIMANA
     Route: 058
     Dates: start: 20250515, end: 20250515

REACTIONS (1)
  - Overflow diarrhoea [Recovered/Resolved]

NARRATIVE: CASE EVENT DATE: 20250515
